FAERS Safety Report 5295957-3 (Version None)
Quarter: 2007Q2

REPORT INFORMATION
  Report Type: 
  Country: None (occurrence: None)
  Receive Date: 20070406
  Receipt Date: 20070322
  Transmission Date: 20071010
  Serious: Yes (Other)
  Sender: FDA-Public Use
  Company Number: PHFR2007GB01103

PATIENT
  Age: 53 Year
  Sex: Female

DRUGS (1)
  1. VISUDYNE [Suspect]
     Indication: CHOROIDAL NEOVASCULARISATION
     Dosage: 9.6 MG DAILY IV
     Route: 042
     Dates: start: 20060626, end: 20060626

REACTIONS (1)
  - ARRHYTHMIA [None]
